FAERS Safety Report 9109790 (Version 2)
Quarter: 2013Q1

REPORT INFORMATION
  Report Type: Spontaneous
  Country: US (occurrence: US)
  Receive Date: 20130222
  Receipt Date: 20130325
  Transmission Date: 20140127
  Serious: Yes (Other)
  Sender: FDA-Public Use
  Company Number: US-PFIZER INC-2013065031

PATIENT
  Age: 63 Year
  Sex: Female

DRUGS (15)
  1. XELJANZ [Suspect]
     Dosage: 5 MG, 2X/DAY
     Route: 048
  2. ZOLPIDEM [Concomitant]
     Dosage: 5 MG
  3. HYDROCODONE W/ACETAMINOPHEN [Concomitant]
     Dosage: 5-300 MG
  4. CALCIUM WITH VITAMIN D [Concomitant]
     Dosage: UNK
  5. VITAMIN D [Concomitant]
     Dosage: 1000 IU
  6. METHOTREXATE [Concomitant]
     Dosage: 2.5 MG
  7. METHOTREXATE [Concomitant]
     Dosage: UNK
  8. PREDNISONE [Concomitant]
     Dosage: 1 MG
  9. PREDNISONE [Concomitant]
     Dosage: 10 MG, 1X/DAY
  10. FOLIC ACID [Concomitant]
     Dosage: 1 MG, 1X/DAY
  11. VICODIN [Concomitant]
     Dosage: 5/325, AS NEEDED
  12. AMBIEN [Concomitant]
     Dosage: UNK, AS NEEDED
  13. VALIUM [Concomitant]
     Dosage: UNK, AS NEEDED
  14. CLARITIN [Concomitant]
     Dosage: UNK, AS NEEDED
  15. EVISTA [Concomitant]
     Indication: OSTEOPOROSIS PROPHYLAXIS
     Dosage: UNK

REACTIONS (4)
  - Diverticulitis [Unknown]
  - Urinary tract infection [Unknown]
  - Staphylococcal infection [Unknown]
  - Headache [Unknown]
